FAERS Safety Report 14765209 (Version 2)
Quarter: 2018Q2

REPORT INFORMATION
  Report Type: Spontaneous
  Country: CN (occurrence: CN)
  Receive Date: 20180416
  Receipt Date: 20180523
  Transmission Date: 20180711
  Serious: Yes (Other)
  Sender: FDA-Public Use
  Company Number: CN-GE HEALTHCARE LIFE SCIENCES-2018CSU001383

PATIENT

DRUGS (2)
  1. OMNISCAN [Suspect]
     Active Substance: GADODIAMIDE
     Dosage: 40 ML, SINGLE
     Route: 042
     Dates: start: 20180323, end: 20180323
  2. OMNISCAN [Suspect]
     Active Substance: GADODIAMIDE
     Indication: BREAST MASS
     Dosage: 40 ML, SINGLE
     Route: 042
     Dates: start: 20180323, end: 20180323

REACTIONS (2)
  - No adverse event [Recovered/Resolved]
  - Drug ineffective [Recovered/Resolved]

NARRATIVE: CASE EVENT DATE: 20180323
